FAERS Safety Report 22390428 (Version 2)
Quarter: 2023Q2

REPORT INFORMATION
  Report Type: Report from Study
  Country: IT (occurrence: IT)
  Receive Date: 20230531
  Receipt Date: 20230602
  Transmission Date: 20230722
  Serious: Yes (Other)
  Sender: FDA-Public Use
  Company Number: IT-BRISTOL-MYERS SQUIBB COMPANY-2023-067027

PATIENT
  Age: 95 Year
  Sex: Male
  Weight: 55 kg

DRUGS (12)
  1. IBUPROFEN [Suspect]
     Active Substance: IBUPROFEN
     Indication: Arthralgia
     Dosage: 600 MILLIGRAM, PRN (ONE SACHET AS NEEDED)
     Route: 048
     Dates: start: 20230210, end: 20230405
  2. LASIX [Suspect]
     Active Substance: FUROSEMIDE
     Indication: Cardiac failure
     Dosage: 25 MILLIGRAM, QD (1 TABLET AT 8 AM)
     Route: 065
  3. LASIX [Suspect]
     Active Substance: FUROSEMIDE
     Dosage: 12.5 MILLIGRAM, QD (1TABLET ? TABLET AT 4 PM)
     Route: 065
  4. ELIQUIS [Suspect]
     Active Substance: APIXABAN
     Indication: Cerebrovascular accident prophylaxis
     Dosage: 2.5 MILLIGRAM, BID
     Route: 048
     Dates: start: 20221126
  5. ELIQUIS [Suspect]
     Active Substance: APIXABAN
     Dosage: 2.5 MILLIGRAM, BID
     Route: 048
     Dates: start: 20221208, end: 20230405
  6. HALCION [Concomitant]
     Active Substance: TRIAZOLAM
     Indication: Product used for unknown indication
     Dosage: 0.5 MILLIGRAM, QD
     Route: 065
  7. FINASTERIDE [Concomitant]
     Active Substance: FINASTERIDE
     Indication: Product used for unknown indication
     Dosage: 5MG (1/2 TABLET)
     Route: 065
  8. METOPROLOL [Concomitant]
     Active Substance: METOPROLOL
     Indication: Product used for unknown indication
     Dosage: 100 MG, QD (1/2 TABLET MORNING AND EVENING)
     Route: 065
  9. SPIRIVA [Concomitant]
     Active Substance: TIOTROPIUM BROMIDE MONOHYDRATE
     Indication: Product used for unknown indication
     Dosage: UNK, 1 INHALATION IN THE MORNING
     Route: 055
  10. SILODOSIN [Concomitant]
     Active Substance: SILODOSIN
     Indication: Product used for unknown indication
     Dosage: 8 MILLIGRAM, QD
     Route: 065
  11. MOVICOL [Concomitant]
     Active Substance: POLYETHYLENE GLYCOL 3350\POTASSIUM CHLORIDE\SODIUM BICARBONATE\SODIUM CHLORIDE
     Indication: Product used for unknown indication
     Dosage: UNK, 1-2 SACHETS/DAY
     Route: 065
  12. PANTOPRAZOLE SODIUM [Concomitant]
     Active Substance: PANTOPRAZOLE SODIUM
     Indication: Product used for unknown indication
     Dosage: 20 MILLIGRAM
     Route: 065

REACTIONS (2)
  - Chronic kidney disease [Not Recovered/Not Resolved]
  - Anaemia [Not Recovered/Not Resolved]

NARRATIVE: CASE EVENT DATE: 20221220
